FAERS Safety Report 11713774 (Version 1)
Quarter: 2015Q4

REPORT INFORMATION
  Report Type: Spontaneous
  Country: US (occurrence: US)
  Receive Date: 20151109
  Receipt Date: 20151109
  Transmission Date: 20160304
  Serious: No
  Sender: FDA-Public Use
  Company Number: US-BAYER-2015-462581

PATIENT
  Sex: Male

DRUGS (1)
  1. MIRALAX [Suspect]
     Active Substance: POLYETHYLENE GLYCOL 3350
     Indication: SPINAL CORD INJURY

REACTIONS (3)
  - Drug ineffective [None]
  - Product use issue [None]
  - Incorrect drug administration duration [None]

NARRATIVE: CASE EVENT DATE: 2008
